FAERS Safety Report 16971044 (Version 1)
Quarter: 2019Q4

REPORT INFORMATION
  Report Type: Spontaneous
  Country: JP (occurrence: JP)
  Receive Date: 20191029
  Receipt Date: 20191029
  Transmission Date: 20200122
  Serious: Yes (Hospitalization)
  Sender: FDA-Public Use
  Company Number: JP-MALLINCKRODT-T201907133

PATIENT
  Age: 87 Year
  Sex: Female

DRUGS (7)
  1. LANSOPRAZOLE. [Concomitant]
     Active Substance: LANSOPRAZOLE
     Indication: CARDIAC FAILURE CHRONIC
     Dosage: UNK
     Route: 048
  2. AMITIZA [Suspect]
     Active Substance: LUBIPROSTONE
     Dosage: UNK
     Route: 048
     Dates: start: 20191010, end: 20191016
  3. MAGMITT [Concomitant]
     Active Substance: MAGNESIUM OXIDE
     Indication: CONSTIPATION
     Dosage: UNK
     Route: 048
  4. CANDESARTAN CILEXETIL. [Concomitant]
     Active Substance: CANDESARTAN CILEXETIL
     Indication: CARDIAC FAILURE CHRONIC
     Dosage: UNK
     Route: 048
  5. AMITIZA [Suspect]
     Active Substance: LUBIPROSTONE
     Indication: CONSTIPATION
     Dosage: UNK
     Route: 048
     Dates: end: 20191002
  6. BAYASPIRIN [Concomitant]
     Active Substance: ASPIRIN
     Indication: CARDIAC FAILURE CHRONIC
     Dosage: UNK
     Route: 048
  7. FUROSEMIDE. [Concomitant]
     Active Substance: FUROSEMIDE
     Indication: CARDIAC FAILURE CHRONIC
     Dosage: UNK
     Route: 048

REACTIONS (3)
  - Cardiac failure chronic [Unknown]
  - Diarrhoea [Recovered/Resolved]
  - Incorrect dose administered [Unknown]

NARRATIVE: CASE EVENT DATE: 201910
